FAERS Safety Report 21338405 (Version 4)
Quarter: 2023Q2

REPORT INFORMATION
  Report Type: Spontaneous
  Country: CA (occurrence: CA)
  Receive Date: 20220915
  Receipt Date: 20230608
  Transmission Date: 20230721
  Serious: Yes (Death, Hospitalization, Other)
  Sender: FDA-Public Use
  Company Number: None

PATIENT
  Age: 27 Year
  Sex: Female
  Weight: 58.97 kg

DRUGS (10)
  1. ESCITALOPRAM OXALATE [Suspect]
     Active Substance: ESCITALOPRAM OXALATE
     Indication: Anxiety
  2. ESCITALOPRAM OXALATE [Suspect]
     Active Substance: ESCITALOPRAM OXALATE
     Indication: Anxiety
  3. LORAZEPAM [Concomitant]
     Active Substance: LORAZEPAM
     Indication: Alcohol detoxification
     Route: 060
  4. LORAZEPAM [Concomitant]
     Active Substance: LORAZEPAM
     Indication: Alcohol detoxification
     Dosage: UNK
     Route: 048
  5. NALTREXONE HYDROCHLORIDE [Suspect]
     Active Substance: NALTREXONE HYDROCHLORIDE
     Indication: Alcohol rehabilitation
     Route: 048
  6. PANTOPRAZOLE MAGNESIUM [Concomitant]
     Active Substance: PANTOPRAZOLE MAGNESIUM
     Indication: Product used for unknown indication
  7. PREGABALIN [Suspect]
     Active Substance: PREGABALIN
     Indication: Anxiety
  8. PREGABALIN [Suspect]
     Active Substance: PREGABALIN
     Indication: Anxiety
  9. LYRICA [Suspect]
     Active Substance: PREGABALIN
     Indication: Product used for unknown indication
  10. LYRICA [Suspect]
     Active Substance: PREGABALIN
     Indication: Product used for unknown indication

REACTIONS (8)
  - Alcohol abuse [Recovered/Resolved]
  - Intentional self-injury [Fatal]
  - Suicide attempt [Recovered/Resolved]
  - Completed suicide [Fatal]
  - Overdose [Unknown]
  - Abnormal behaviour [Fatal]
  - Serotonin syndrome [Fatal]
  - Off label use [Fatal]
